FAERS Safety Report 10184248 (Version 1)
Quarter: 2014Q2

REPORT INFORMATION
  Report Type: Spontaneous
  Country: US (occurrence: US)
  Receive Date: 20140520
  Receipt Date: 20140520
  Transmission Date: 20141212
  Serious: No
  Sender: FDA-Public Use
  Company Number: US-ASTRAZENECA-2013SE59756

PATIENT
  Age: 71 Year
  Sex: Female
  Weight: 63.5 kg

DRUGS (1)
  1. RHINOCORT AQUA [Suspect]
     Indication: SINUS DISORDER
     Dosage: 32 MCG, 2 PUFFS PER NOSTRIL DAILY
     Route: 045

REACTIONS (8)
  - Sinus disorder [Unknown]
  - Headache [Unknown]
  - Chest pain [Unknown]
  - Abdominal discomfort [Unknown]
  - Chills [Unknown]
  - Tooth disorder [Unknown]
  - Off label use [Unknown]
  - Drug ineffective [Unknown]
